FAERS Safety Report 9162383 (Version 1)
Quarter: 2013Q1

REPORT INFORMATION
  Report Type: Report from Study
  Country: US (occurrence: US)
  Receive Date: 20130314
  Receipt Date: 20130314
  Transmission Date: 20140127
  Serious: No
  Sender: FDA-Public Use
  Company Number: US-VERTEX PHARMACEUTICALS INC.-2013-003385

PATIENT
  Sex: Male
  Weight: 91 kg

DRUGS (8)
  1. VX-950 (TELAPREVIR) [Suspect]
     Indication: HEPATITIS C
     Dosage: 750 MG, TID
     Route: 048
  2. PEGASYS [Suspect]
     Indication: HEPATITIS C
     Dosage: PROCLICK
  3. RIBAVIRIN [Suspect]
     Indication: HEPATITIS C
     Dosage: 200 MG
  4. MULTIVITAMIN [Concomitant]
  5. VITAMIN D3 [Concomitant]
     Dosage: 10000 UT
  6. BISOPROLOL + HCT MERCK [Concomitant]
     Dosage: 2.5/6.25
  7. LISINOPRIL [Concomitant]
     Dosage: 20 MG
  8. HYDROCODONE [Concomitant]

REACTIONS (1)
  - Chromaturia [Unknown]
